FAERS Safety Report 21868111 (Version 1)
Quarter: 2023Q1

REPORT INFORMATION
  Report Type: Report from Study
  Country: US (occurrence: US)
  Receive Date: 20230116
  Receipt Date: 20230116
  Transmission Date: 20230417
  Serious: Yes (Other)
  Sender: FDA-Public Use
  Company Number: US-ABBVIE-4270423

PATIENT
  Age: 61 Year
  Sex: Female

DRUGS (2)
  1. HUMIRA [Suspect]
     Active Substance: ADALIMUMAB
     Indication: Rheumatoid arthritis
     Dosage: LAST ADMIN DATE: 2022; THE EVENT CHEST INFECTION, COUGHING, RHEUMATOID ARTHRITIS FLARE UP AND UPP...
     Route: 058
     Dates: start: 20220509
  2. HUMIRA [Suspect]
     Active Substance: ADALIMUMAB
     Route: 058
     Dates: start: 2022

REACTIONS (8)
  - Thrombosis [Recovered/Resolved]
  - Osteotomy [Recovered/Resolved]
  - Cough [Unknown]
  - Sinusitis [Unknown]
  - Rheumatoid arthritis [Unknown]
  - Lower respiratory tract infection [Unknown]
  - Musculoskeletal disorder [Unknown]
  - Osteotomy [Recovered/Resolved]

NARRATIVE: CASE EVENT DATE: 20221006
